FAERS Safety Report 10089656 (Version 1)
Quarter: 2014Q2

REPORT INFORMATION
  Report Type: Spontaneous
  Country: US (occurrence: None)
  Receive Date: 20140418
  Receipt Date: 20140418
  Transmission Date: 20141212
  Serious: No
  Sender: FDA-Public Use
  Company Number: None

PATIENT
  Sex: Female

DRUGS (2)
  1. NEORAL [Suspect]
     Indication: RENAL TRANSPLANT
     Dosage: 50MG IN THE AM AND    TWICE A DAY ORAL?25 MG IN THE EVENING
     Route: 048
     Dates: start: 20110130
  2. NEORAL [Suspect]
     Indication: LIVER TRANSPLANT
     Dosage: 50MG IN THE AM AND    TWICE A DAY ORAL?25 MG IN THE EVENING
     Route: 048
     Dates: start: 20110130

REACTIONS (1)
  - Blood test abnormal [None]
